FAERS Safety Report 5276543-8 (Version None)
Quarter: 2007Q1

REPORT INFORMATION
  Report Type: 
  Country: None (occurrence: None)
  Receive Date: 20061213
  Receipt Date: 20040126
  Transmission Date: 20070707
  Serious: No
  Sender: FDA-Public Use
  Company Number: 2004UW01367

PATIENT
  Sex: Male

DRUGS (2)
  1. SEROQUEL [Suspect]
  2. OTHER PSYCHOTROPIC DRUGS [Concomitant]

REACTIONS (2)
  - AKATHISIA [None]
  - EXTRAPYRAMIDAL DISORDER [None]
